FAERS Safety Report 25170571 (Version 1)
Quarter: 2025Q2

REPORT INFORMATION
  Report Type: Report from Study
  Country: US (occurrence: US)
  Receive Date: 20250408
  Receipt Date: 20250408
  Transmission Date: 20250717
  Serious: Yes (Other)
  Sender: ABBVIE
  Company Number: US-ABBVIE-6215990

PATIENT
  Age: 62 Year
  Sex: Female

DRUGS (1)
  1. BOTOX [Suspect]
     Active Substance: ONABOTULINUMTOXINA
     Indication: Product used for unknown indication
     Route: 065
     Dates: start: 2022, end: 2022

REACTIONS (6)
  - Spinal operation [Unknown]
  - Fall [Unknown]
  - Concussion [Unknown]
  - Post concussion syndrome [Unknown]
  - COVID-19 [Unknown]
  - Fall [Recovered/Resolved]

NARRATIVE: CASE EVENT DATE: 20220721
